FAERS Safety Report 8259285-6 (Version None)
Quarter: 2012Q2

REPORT INFORMATION
  Report Type: 
  Country: None (occurrence: None)
  Receive Date: 20120404
  Receipt Date: 20120330
  Transmission Date: 20120825
  Serious: Yes (Death, Other)
  Sender: FDA-Public Use
  Company Number: FR-PFIZER INC-2012081385

PATIENT
  Age: 2 Year

DRUGS (2)
  1. HYDROCORTISONE [Concomitant]
     Indication: RESPIRATORY DISORDER
     Dosage: UNK
  2. SOMATROPIN RDNA [Suspect]
     Indication: PRADER-WILLI SYNDROME
     Dosage: 0.3 MG, 1X/DAY
     Dates: start: 20110908

REACTIONS (2)
  - GASTROENTERITIS [None]
  - DIARRHOEA [None]
